FAERS Safety Report 19476576 (Version 1)
Quarter: 2021Q2

REPORT INFORMATION
  Report Type: Other
  Country: JP (occurrence: JP)
  Receive Date: 20210630
  Receipt Date: 20210630
  Transmission Date: 20210717
  Serious: Yes (Hospitalization, Other)
  Sender: FDA-Public Use
  Company Number: JP-ROCHE-2860421

PATIENT
  Age: 57 Year
  Sex: Female

DRUGS (2)
  1. RITUXAN [Suspect]
     Active Substance: RITUXIMAB
     Indication: TRANSPLANT REJECTION
     Route: 041
  2. RITUXAN [Suspect]
     Active Substance: RITUXIMAB
     Indication: KIDNEY TRANSPLANT REJECTION

REACTIONS (4)
  - Large intestine perforation [Unknown]
  - Pneumocystis jirovecii pneumonia [Recovered/Resolved]
  - Off label use [Unknown]
  - Neutropenia [Unknown]

NARRATIVE: CASE EVENT DATE: 201902
